FAERS Safety Report 4597212-3 (Version None)
Quarter: 2005Q1

REPORT INFORMATION
  Report Type: 
  Country: None (occurrence: None)
  Receive Date: 20050301
  Receipt Date: 20050214
  Transmission Date: 20050727
  Serious: No
  Sender: FDA-Public Use
  Company Number: 2005AC00092

PATIENT
  Age: 46 Year
  Sex: Male

DRUGS (2)
  1. BUPIVACAINE [Suspect]
     Indication: BACK PAIN
     Dosage: 4 ML ONCE ED
     Route: 008
  2. METHYLPREDNISOLONE [Suspect]
     Indication: BACK PAIN
     Dosage: 80 MG ONCE

REACTIONS (6)
  - ANAESTHETIC COMPLICATION NEUROLOGICAL [None]
  - BLOOD PRESSURE DECREASED [None]
  - HEART RATE DECREASED [None]
  - MEDICATION ERROR [None]
  - NERVE INJURY [None]
  - POST PROCEDURAL COMPLICATION [None]
